FAERS Safety Report 5290899-1 (Version None)
Quarter: 2007Q2

REPORT INFORMATION
  Report Type: 
  Country: None (occurrence: None)
  Receive Date: 20070409
  Receipt Date: 20070328
  Transmission Date: 20071010
  Serious: Yes (Death, Life-Threatening)
  Sender: FDA-Public Use
  Company Number: FR-PFIZER INC-2007018213

PATIENT
  Sex: Female

DRUGS (20)
  1. TAHOR [Suspect]
     Route: 048
     Dates: start: 20070201, end: 20070204
  2. CORDARONE [Suspect]
     Dosage: DAILY DOSE:900MG
     Route: 042
     Dates: start: 20070201, end: 20070204
  3. SERTRALINE HYDROCHLORIDE [Concomitant]
  4. CETIRIZINE HCL [Concomitant]
  5. AMISULPRIDE [Concomitant]
  6. SEVELAMER [Concomitant]
  7. ACEPROMAZINE [Concomitant]
  8. SODIUM POLYSTYRENE SULFONATE [Concomitant]
  9. TRAMADOL HYDROCHLORIDE/ACETAMINOPHEN [Concomitant]
  10. ASPIRIN [Concomitant]
     Dates: start: 20070201, end: 20070201
  11. ESOMEPRAZOLE MAGNESIUM [Concomitant]
  12. QUININE [Concomitant]
  13. CALCIUM CARBONATE [Concomitant]
  14. DIPYRIDAMOLE [Concomitant]
  15. AMOXICILLIN + CLAVULANATE POTASSIUM [Concomitant]
     Dates: start: 20070201, end: 20070205
  16. HEPARIN [Concomitant]
     Dates: start: 20070201, end: 20070205
  17. CLOPIDOGREL [Concomitant]
     Dates: start: 20070201, end: 20070205
  18. ATENOLOL [Concomitant]
     Dates: start: 20070201, end: 20070205
  19. CIPROFLOXACIN [Concomitant]
     Dates: start: 20070201, end: 20070205
  20. INSULIN HUMAN [Concomitant]

REACTIONS (4)
  - ALANINE AMINOTRANSFERASE INCREASED [None]
  - ASPARTATE AMINOTRANSFERASE INCREASED [None]
  - BLOOD CREATINE PHOSPHOKINASE INCREASED [None]
  - RHABDOMYOLYSIS [None]
